FAERS Safety Report 6260861-0 (Version None)
Quarter: 2009Q3

REPORT INFORMATION
  Report Type: 
  Country: None (occurrence: None)
  Receive Date: 20090707
  Receipt Date: 20090624
  Transmission Date: 20100115
  Serious: Yes (Death)
  Sender: FDA-Public Use
  Company Number: 1000007155

PATIENT
  Age: 30 Year
  Sex: Male

DRUGS (1)
  1. ESCITALOPRAM [Suspect]
     Dosage: 1 DOSAGE FORMS (1 DOSAGE FORMS, 1 IN 1 D)

REACTIONS (1)
  - COMPLETED SUICIDE [None]
